FAERS Safety Report 17576839 (Version 1)
Quarter: 2020Q1

REPORT INFORMATION
  Report Type: Spontaneous
  Country: US (occurrence: US)
  Receive Date: 20200324
  Receipt Date: 20200324
  Transmission Date: 20200409
  Serious: Yes (Hospitalization)
  Sender: FDA-Public Use
  Company Number: None

PATIENT
  Age: 36 Year
  Sex: Female
  Weight: 72 kg

DRUGS (1)
  1. BOTOX [Suspect]
     Active Substance: ONABOTULINUMTOXINA
     Indication: AUTOMATIC BLADDER
     Dosage: ?          OTHER FREQUENCY:ONCE ON 1/24;?
     Route: 030
     Dates: start: 20200124, end: 20200124

REACTIONS (4)
  - Urinary tract infection [None]
  - Acute kidney injury [None]
  - Urinary retention [None]
  - Blood creatinine increased [None]

NARRATIVE: CASE EVENT DATE: 20200315
